FAERS Safety Report 4504451-6 (Version None)
Quarter: 2004Q4

REPORT INFORMATION
  Report Type: 
  Country: None (occurrence: None)
  Receive Date: 20041117
  Receipt Date: 20041117
  Transmission Date: 20050328
  Serious: No
  Sender: FDA-Public Use
  Company Number: None

PATIENT
  Age: 71 Year
  Sex: Female
  Weight: 79.3795 kg

DRUGS (7)
  1. PHENYTOIN ERC 100 MG MYLAN [Suspect]
     Indication: COMPLEX PARTIAL SEIZURES
     Dosage: 200 MG ALT W/ 300 MG DAILY
  2. ACETAMINOPHEN [Concomitant]
  3. M.V.I. [Concomitant]
  4. NEURONTIN [Concomitant]
  5. ZOLOFT [Concomitant]
  6. ZYPREXA [Concomitant]
  7. LISINOPRIL [Concomitant]

REACTIONS (1)
  - DRUG LEVEL DECREASED [None]
